FAERS Safety Report 23692848 (Version 1)
Quarter: 2024Q2

REPORT INFORMATION
  Report Type: Spontaneous
  Country: US (occurrence: US)
  Receive Date: 20240401
  Receipt Date: 20240401
  Transmission Date: 20240716
  Serious: No
  Sender: FDA-Public Use
  Company Number: US-BIOGEN-2020BI00871138

PATIENT
  Age: 54 Year
  Sex: Female

DRUGS (2)
  1. TYSABRI [Suspect]
     Active Substance: NATALIZUMAB
     Indication: Multiple sclerosis
     Route: 050
     Dates: start: 20101004
  2. TYSABRI [Suspect]
     Active Substance: NATALIZUMAB
     Route: 050

REACTIONS (10)
  - Prescribed underdose [Unknown]
  - Mobility decreased [Unknown]
  - Poor venous access [Unknown]
  - Vein disorder [Unknown]
  - Ligament rupture [Unknown]
  - Multiple sclerosis [Unknown]
  - Hypersomnia [Unknown]
  - Illness [Unknown]
  - Fatigue [Unknown]
  - Hypersensitivity [Recovered/Resolved]

NARRATIVE: CASE EVENT DATE: 20230901
